FAERS Safety Report 8234787-7 (Version None)
Quarter: 2012Q1

REPORT INFORMATION
  Report Type: 
  Country: None (occurrence: None)
  Receive Date: 20120322
  Receipt Date: 20120315
  Transmission Date: 20120608
  Serious: Yes (Death, Life-Threatening, Hospitalization)
  Sender: FDA-Public Use
  Company Number: 216742

PATIENT
  Age: 54 Year
  Sex: Male
  Weight: 69 kg

DRUGS (12)
  1. CORTANCYL (PREDNISONE) (5) [Concomitant]
  2. INNOHEP [Suspect]
     Indication: PULMONARY EMBOLISM
     Dosage: 14000 IU, SUBCUTANEOUS, 14000 X 10 AT LEAST (ONE DOSE), SUBCUTANEOUS
     Route: 058
     Dates: start: 20111225, end: 20111225
  3. INNOHEP [Suspect]
     Indication: TOXICITY TO VARIOUS AGENTS
     Dosage: 14000 IU, SUBCUTANEOUS, 14000 X 10 AT LEAST (ONE DOSE), SUBCUTANEOUS
     Route: 058
     Dates: start: 20111225, end: 20111225
  4. INNOHEP [Suspect]
     Indication: PULMONARY EMBOLISM
     Dosage: 14000 IU, SUBCUTANEOUS, 14000 X 10 AT LEAST (ONE DOSE), SUBCUTANEOUS
     Route: 058
     Dates: start: 20100801, end: 20111201
  5. INNOHEP [Suspect]
     Indication: TOXICITY TO VARIOUS AGENTS
     Dosage: 14000 IU, SUBCUTANEOUS, 14000 X 10 AT LEAST (ONE DOSE), SUBCUTANEOUS
     Route: 058
     Dates: start: 20100801, end: 20111201
  6. SECTRAL (ACEBUTOLOL HYDROCHLORIDE) (200) [Suspect]
     Indication: HYPERTENSION
     Dosage: ORAL, 10 TABLETS, ORAL
     Route: 048
     Dates: start: 20111225, end: 20111225
  7. SECTRAL (ACEBUTOLOL HYDROCHLORIDE) (200) [Suspect]
     Indication: TOXICITY TO VARIOUS AGENTS
     Dosage: ORAL, 10 TABLETS, ORAL
     Route: 048
     Dates: start: 20111225, end: 20111225
  8. PROGRAF [Concomitant]
  9. CHEMOTHERAPY (CHEMOTHERAPEUTICS NOS) [Concomitant]
  10. RAMIPRIL [Suspect]
     Indication: TOXICITY TO VARIOUS AGENTS
     Dosage: UNKNOWN AMOUNT, 10 TABLETS, ORAL
     Route: 048
     Dates: start: 20111225, end: 20111225
  11. RAMIPRIL [Suspect]
     Indication: TOXICITY TO VARIOUS AGENTS
     Dosage: UNKNOWN AMOUNT, 10 TABLETS, ORAL
     Route: 048
     Dates: start: 20111225, end: 20111225
  12. CELLCEPT (MYCOPHENOLATE MOFETIL) (500) [Concomitant]

REACTIONS (8)
  - SHOCK HAEMORRHAGIC [None]
  - CARDIOGENIC SHOCK [None]
  - MULTIPLE DRUG OVERDOSE INTENTIONAL [None]
  - COMPLETED SUICIDE [None]
  - DIALYSIS [None]
  - RENAL FAILURE [None]
  - MULTI-ORGAN FAILURE [None]
  - LUNG DISORDER [None]
